FAERS Safety Report 23220064 (Version 1)
Quarter: 2023Q4

REPORT INFORMATION
  Report Type: Other
  Country: AU (occurrence: None)
  Receive Date: 20231122
  Receipt Date: 20231122
  Transmission Date: 20240110
  Serious: No
  Sender: FDA-Public Use
  Company Number: AU-ROCHE-2843375

PATIENT
  Age: 42 Year
  Sex: Female

DRUGS (2)
  1. OCREVUS [Suspect]
     Active Substance: OCRELIZUMAB
     Indication: Relapsing-remitting multiple sclerosis
     Dosage: LAST DOSE RECEIVED 01/DEC/2020
     Route: 041
  2. FLUVAX [Concomitant]
     Active Substance: INFLUENZA VIRUS VACCINE
     Dosage: 2 WEEKS AGO

REACTIONS (2)
  - Vertigo [Not Recovered/Not Resolved]
  - Herpes zoster [Recovered/Resolved]

NARRATIVE: CASE EVENT DATE: 20200701
